FAERS Safety Report 7470399-0 (Version None)
Quarter: 2011Q2

REPORT INFORMATION
  Report Type: 
  Country: None (occurrence: None)
  Receive Date: 20110510
  Receipt Date: 20110506
  Transmission Date: 20111010
  Serious: Yes (Life-Threatening, Hospitalization)
  Sender: FDA-Public Use
  Company Number: DE-ASTRAZENECA-2011SE14240

PATIENT
  Age: 19304 Day
  Sex: Female
  Weight: 70 kg

DRUGS (10)
  1. SEROQUEL XR [Suspect]
     Indication: BIPOLAR DISORDER
     Dosage: BETWEN 150 AND 300 MG
     Route: 048
     Dates: start: 20090606
  2. SEROQUEL XR [Suspect]
     Indication: MAJOR DEPRESSION
     Dosage: BETWEN 150 AND 300 MG
     Route: 048
     Dates: start: 20090606
  3. SEROQUEL XR [Suspect]
     Dosage: 11.3 G ONCE
     Route: 048
     Dates: start: 20110313, end: 20110313
  4. LORAZEPAM [Suspect]
     Dosage: 10 MG ONCE
     Route: 048
     Dates: start: 20110313, end: 20110313
  5. TREVILOR RET. [Concomitant]
     Indication: BIPOLAR DISORDER
     Route: 048
     Dates: start: 20080101
  6. SEROQUEL XR [Suspect]
     Dosage: 11.3 G ONCE
     Route: 048
     Dates: start: 20110313, end: 20110313
  7. LAMOTRIGINE [Concomitant]
     Indication: MOOD SWINGS
     Route: 048
     Dates: start: 20100801, end: 20110314
  8. LORAZEPAM [Suspect]
     Indication: ANXIETY
     Dosage: 0.5-1 MG DAILY
     Route: 048
     Dates: end: 20110314
  9. VENLAFAXINE [Concomitant]
     Indication: DEPRESSION
     Dates: start: 20080101, end: 20110401
  10. LAMOTRIGINE [Concomitant]
     Indication: BIPOLAR DISORDER
     Route: 048
     Dates: start: 20100801, end: 20110314

REACTIONS (3)
  - COMA [None]
  - INTENTIONAL OVERDOSE [None]
  - SUICIDE ATTEMPT [None]
